FAERS Safety Report 7625397-0 (Version None)
Quarter: 2011Q3

REPORT INFORMATION
  Report Type: 
  Country: None (occurrence: None)
  Receive Date: 20110721
  Receipt Date: 20110714
  Transmission Date: 20111222
  Serious: Yes (Hospitalization, Other)
  Sender: FDA-Public Use
  Company Number: US-BAYER-2011-037577

PATIENT
  Age: 19 Year
  Sex: Female
  Weight: 53.061 kg

DRUGS (4)
  1. YAZ [Suspect]
     Indication: OVARIAN CYST
  2. YASMIN [Suspect]
     Indication: CONTRACEPTION
     Dosage: UNK
     Dates: start: 20070101, end: 20090101
  3. YASMIN [Suspect]
     Indication: OVARIAN CYST
  4. YAZ [Suspect]
     Indication: CONTRACEPTION
     Dosage: UNK
     Dates: start: 20030101, end: 20060101

REACTIONS (4)
  - CHOLELITHIASIS [None]
  - CHOLECYSTECTOMY [None]
  - ABDOMINAL PAIN [None]
  - CHOLECYSTITIS CHRONIC [None]
